FAERS Safety Report 6154438-5 (Version None)
Quarter: 2009Q2

REPORT INFORMATION
  Report Type: 
  Country: None (occurrence: None)
  Receive Date: 20090414
  Receipt Date: 20090408
  Transmission Date: 20091009
  Serious: Yes (Disabling, Other)
  Sender: FDA-Public Use
  Company Number: GB-MERCK-0904GBR00032

PATIENT
  Age: 72 Year
  Sex: Male
  Weight: 73 kg

DRUGS (6)
  1. ZOCOR [Suspect]
     Indication: HYPERCHOLESTEROLAEMIA
     Route: 048
     Dates: start: 20070401, end: 20090212
  2. MESALAMINE [Concomitant]
     Indication: COLITIS ULCERATIVE
     Route: 065
  3. DAPSONE [Concomitant]
     Indication: RASH
     Route: 065
     Dates: start: 20071001
  4. OMEPRAZOLE MAGNESIUM [Concomitant]
     Route: 065
     Dates: start: 19970101
  5. NIFEDIPINE [Concomitant]
     Indication: HYPERTENSION
     Route: 048
     Dates: start: 19940101
  6. PROPRANOLOL HYDROCHLORIDE [Concomitant]
     Indication: ANXIETY
     Route: 048

REACTIONS (4)
  - ASTHENIA [None]
  - MYALGIA [None]
  - NIGHT SWEATS [None]
  - WEIGHT DECREASED [None]
